FAERS Safety Report 17748284 (Version 7)
Quarter: 2020Q4

REPORT INFORMATION
  Report Type: Spontaneous
  Country: US (occurrence: US)
  Receive Date: 20200505
  Receipt Date: 20201123
  Transmission Date: 20210113
  Serious: Yes (Other)
  Sender: FDA-Public Use
  Company Number: US-ROCHE-2420398

PATIENT
  Age: 71 Year
  Sex: Male
  Weight: 71.28 kg

DRUGS (35)
  1. ESBRIET [Suspect]
     Active Substance: PIRFENIDONE
     Dosage: THREE CAPSULES, THREE TIMES A DAY WITH MEALS
     Route: 048
     Dates: start: 20190809
  2. ESBRIET [Suspect]
     Active Substance: PIRFENIDONE
     Dosage: THREE CAPSULES, THRICE DAILY
     Route: 048
  3. ESBRIET [Suspect]
     Active Substance: PIRFENIDONE
     Dosage: TWO CAPSULES, TWO TIMES DAILY
     Route: 048
  4. CLONAZEPAM. [Concomitant]
     Active Substance: CLONAZEPAM
  5. METHYLPHENIDATE HYDROCHLORIDE. [Concomitant]
     Active Substance: METHYLPHENIDATE HYDROCHLORIDE
  6. ESBRIET [Suspect]
     Active Substance: PIRFENIDONE
     Indication: PULMONARY FIBROSIS
     Dosage: TAKE ONE CAPSULES, THREE TIMES DAILY
     Route: 048
     Dates: start: 20190508
  7. MULTIVITAMIN IRON [Concomitant]
  8. ESBRIET [Suspect]
     Active Substance: PIRFENIDONE
     Dosage: 3 CAPSULES, THREE TIMES A DAY WITH MEALS
     Route: 048
  9. ESBRIET [Suspect]
     Active Substance: PIRFENIDONE
     Dosage: 1 CAPSULE TWICE A DAY FOR 1 WEEK
     Route: 048
     Dates: start: 20191231
  10. CEFDINIR. [Concomitant]
     Active Substance: CEFDINIR
  11. ESBRIET [Suspect]
     Active Substance: PIRFENIDONE
     Indication: IDIOPATHIC PULMONARY FIBROSIS
     Dosage: 2 CAPSULES, THREE TIMES A DAY
     Route: 048
  12. ESBRIET [Suspect]
     Active Substance: PIRFENIDONE
     Dosage: 3 CAPSULES, THREE TIMES A DAY
     Route: 048
  13. FISH OIL [Concomitant]
     Active Substance: FISH OIL
  14. PREDNISONE. [Concomitant]
     Active Substance: PREDNISONE
  15. PREDNISONE. [Concomitant]
     Active Substance: PREDNISONE
     Route: 048
  16. ROCKLATAN [Concomitant]
     Active Substance: LATANOPROST\NETARSUDIL MESYLATE
  17. ESBRIET [Suspect]
     Active Substance: PIRFENIDONE
     Dosage: TWO CAPSULES THREE TIMES DAILY FOR ONE WEEK WITH MEALS
     Route: 048
  18. AUGMENTIN [Suspect]
     Active Substance: AMOXICILLIN\CLAVULANATE POTASSIUM
     Indication: URINARY TRACT INFECTION
     Route: 048
     Dates: start: 202007, end: 202007
  19. BUSPIRONE HYDROCHLORIDE. [Concomitant]
     Active Substance: BUSPIRONE HYDROCHLORIDE
  20. FLUTICASONE PROPIONATE. [Concomitant]
     Active Substance: FLUTICASONE PROPIONATE
  21. TIMOLOL. [Concomitant]
     Active Substance: TIMOLOL
     Dosage: 1 DROP IN EACH EYE TWICE A DAY
     Route: 047
  22. LATANOPROST. [Concomitant]
     Active Substance: LATANOPROST
     Indication: GLAUCOMA
     Dosage: 1 DROP IN EACH EYE DAILY
     Route: 047
  23. ESBRIET [Suspect]
     Active Substance: PIRFENIDONE
     Dosage: THREE CAPSULES, THREE TIMES A DAY
     Route: 048
     Dates: start: 201912
  24. ESBRIET [Suspect]
     Active Substance: PIRFENIDONE
     Dosage: 2 CAPSULES ONE TIME A DAY FOR 7 DAYS
     Route: 048
     Dates: start: 20200722
  25. ESBRIET [Suspect]
     Active Substance: PIRFENIDONE
     Dosage: FOR ONE WEEK
     Route: 048
     Dates: start: 20190815
  26. ESBRIET [Suspect]
     Active Substance: PIRFENIDONE
     Dosage: THREE CAPSULES, THREE TIMES DAILY WITH MEALS
     Route: 048
  27. ATORVASTATIN CALCIUM. [Concomitant]
     Active Substance: ATORVASTATIN CALCIUM
  28. TYLENOL [Concomitant]
     Active Substance: ACETAMINOPHEN
  29. CALCIUM +D [Concomitant]
     Active Substance: CALCIUM\VITAMIN D
  30. ESBRIET [Suspect]
     Active Substance: PIRFENIDONE
     Dosage: 2 CAPSULES TWICE A DAY
     Route: 048
     Dates: start: 20200730
  31. ASPIRIN 81 [Concomitant]
     Active Substance: ASPIRIN
  32. TIMOLOL MALEATE. [Concomitant]
     Active Substance: TIMOLOL MALEATE
     Indication: GLAUCOMA
     Dosage: 1 DROP IN EACH EYE TWICE A DAY
     Route: 047
  33. ESBRIET [Suspect]
     Active Substance: PIRFENIDONE
     Dosage: 3 PILLS 3 TIMES A DAY WITH MEALS
     Route: 048
     Dates: start: 20190813
  34. GABAPENTIN. [Concomitant]
     Active Substance: GABAPENTIN
  35. IRON [Concomitant]
     Active Substance: IRON

REACTIONS (23)
  - Urinary tract infection [Recovering/Resolving]
  - Upper respiratory tract congestion [Not Recovered/Not Resolved]
  - Hypophagia [Not Recovered/Not Resolved]
  - Hypersomnia [Not Recovered/Not Resolved]
  - Faeces pale [Recovering/Resolving]
  - Feeding disorder [Not Recovered/Not Resolved]
  - Bladder dilatation [Not Recovered/Not Resolved]
  - Dyspnoea exertional [Not Recovered/Not Resolved]
  - Nausea [Not Recovered/Not Resolved]
  - Faeces discoloured [Not Recovered/Not Resolved]
  - Blood urine present [Recovered/Resolved]
  - Decreased appetite [Recovered/Resolved]
  - Faeces pale [Not Recovered/Not Resolved]
  - Cough [Not Recovered/Not Resolved]
  - Decreased appetite [Not Recovered/Not Resolved]
  - Weight decreased [Not Recovered/Not Resolved]
  - Malaise [Not Recovered/Not Resolved]
  - Depression [Not Recovered/Not Resolved]
  - Intentional product use issue [Unknown]
  - Diarrhoea [Recovered/Resolved]
  - Procedural pain [Not Recovered/Not Resolved]
  - Faeces pale [Not Recovered/Not Resolved]
  - Fatigue [Not Recovered/Not Resolved]

NARRATIVE: CASE EVENT DATE: 20191128
